FAERS Safety Report 9958405 (Version 2)
Quarter: 2014Q2

REPORT INFORMATION
  Report Type: Report from Study
  Country: US (occurrence: US)
  Receive Date: 20140305
  Receipt Date: 20140627
  Transmission Date: 20141212
  Serious: Yes (Other)
  Sender: FDA-Public Use
  Company Number: US-ROCHE-1347217

PATIENT
  Sex: Female

DRUGS (11)
  1. LUCENTIS [Suspect]
     Indication: RETINAL OEDEMA
     Route: 050
  2. LUCENTIS [Suspect]
     Indication: AGE-RELATED MACULAR DEGENERATION
  3. AVASTIN [Suspect]
     Indication: MACULAR OEDEMA
     Dosage: OD
     Route: 065
     Dates: start: 20080702, end: 20080812
  4. SYSTANE [Concomitant]
     Dosage: 1 GTT IN OU BID-QID PRN
     Route: 065
  5. LISINOPRIL [Concomitant]
     Route: 065
  6. HYDROCHLOROTHIAZIDE [Concomitant]
     Route: 065
  7. SIMVASTATIN [Concomitant]
  8. CARVEDILOL [Concomitant]
     Route: 065
  9. TOBRAMYCIN SULFATE [Concomitant]
     Dosage: 1 GTT IN OD QID X 4 DAYS THEN STOP
     Route: 065
  10. ASPIRIN [Concomitant]
     Route: 065
  11. ALCAINE [Concomitant]
     Dosage: GTT
     Route: 065

REACTIONS (5)
  - Macular oedema [Unknown]
  - Vision blurred [Unknown]
  - Nasal congestion [Unknown]
  - Retinal telangiectasia [Unknown]
  - Visual acuity reduced [Unknown]
